FAERS Safety Report 20429466 (Version 1)
Quarter: 2022Q1

REPORT INFORMATION
  Report Type: Spontaneous
  Country: LT (occurrence: LT)
  Receive Date: 20220204
  Receipt Date: 20220204
  Transmission Date: 20220423
  Serious: Yes (Other)
  Sender: FDA-Public Use
  Company Number: LT-BAYER-2022A015872

PATIENT
  Age: 67 Year
  Sex: Female

DRUGS (3)
  1. NEXAVAR [Suspect]
     Active Substance: SORAFENIB
     Indication: Hepatocellular carcinoma
     Dosage: 400 MG, UNK
     Dates: start: 20180719, end: 20201116
  2. GLECAPREVIR [Concomitant]
     Active Substance: GLECAPREVIR
     Indication: Hepatitis C
     Dosage: UNK
     Dates: start: 2019
  3. PIBRENTASVIR [Concomitant]
     Active Substance: PIBRENTASVIR
     Indication: Hepatitis C
     Dosage: UNK
     Dates: start: 2019

REACTIONS (3)
  - Hepatic function abnormal [None]
  - Hepatocellular carcinoma [None]
  - Drug ineffective [None]
